FAERS Safety Report 25391623 (Version 3)
Quarter: 2025Q2

REPORT INFORMATION
  Report Type: Spontaneous
  Country: US (occurrence: US)
  Receive Date: 20250603
  Receipt Date: 20250625
  Transmission Date: 20250717
  Serious: Yes (Hospitalization)
  Sender: SPRINGWORKS THERAPEUTIC
  Company Number: US-SPRINGWORKS THERAPEUTICS-SW-002841

PATIENT
  Age: 53 Year
  Sex: Male

DRUGS (1)
  1. OGSIVEO [Suspect]
     Active Substance: NIROGACESTAT HYDROBROMIDE
     Indication: Desmoid tumour
     Dosage: 150 MILLIGRAM, BID
     Dates: start: 20241015, end: 20241019

REACTIONS (11)
  - Small intestinal perforation [Recovered/Resolved]
  - Small intestinal obstruction [Recovered/Resolved]
  - Sepsis [Recovered/Resolved]
  - Face oedema [Recovered/Resolved]
  - Malaise [Recovered/Resolved]
  - Vomiting [Recovered/Resolved]
  - Pyrexia [Recovered/Resolved]
  - Nausea [Recovered/Resolved]
  - Fatigue [Recovered/Resolved]
  - Diarrhoea [Recovered/Resolved]
  - Dyspnoea [Recovered/Resolved]

NARRATIVE: CASE EVENT DATE: 20241018
